FAERS Safety Report 12373682 (Version 1)
Quarter: 2016Q2

REPORT INFORMATION
  Report Type: Spontaneous
  Country: CN (occurrence: CN)
  Receive Date: 20160516
  Receipt Date: 20160516
  Transmission Date: 20160815
  Serious: Yes (Hospitalization)
  Sender: FDA-Public Use
  Company Number: CN-JNJFOC-20160504920

PATIENT
  Age: 53 Year
  Sex: Female

DRUGS (4)
  1. ACETAMINOPHEN. [Suspect]
     Active Substance: ACETAMINOPHEN
     Indication: NASOPHARYNGITIS
     Route: 065
     Dates: start: 20130304, end: 20130305
  2. ACETAMINOPHEN. [Suspect]
     Active Substance: ACETAMINOPHEN
     Indication: PYREXIA
     Route: 065
     Dates: start: 20130304, end: 20130305
  3. CEFRADINE [Suspect]
     Active Substance: CEPHRADINE
     Indication: PYREXIA
     Route: 065
     Dates: start: 20130304, end: 20130305
  4. CEFRADINE [Suspect]
     Active Substance: CEPHRADINE
     Indication: NASOPHARYNGITIS
     Route: 065
     Dates: start: 20130304, end: 20130305

REACTIONS (1)
  - Toxic epidermal necrolysis [Recovering/Resolving]

NARRATIVE: CASE EVENT DATE: 20130313
